FAERS Safety Report 8976043 (Version 2)
Quarter: 2013Q1

REPORT INFORMATION
  Report Type: Report from Study
  Country: US (occurrence: US)
  Receive Date: 20121219
  Receipt Date: 20130220
  Transmission Date: 20140127
  Serious: Yes (Other)
  Sender: FDA-Public Use
  Company Number: US-ABBOTT-12P-163-1021341-00

PATIENT
  Sex: Female
  Weight: 136.2 kg

DRUGS (11)
  1. HUMIRA [Suspect]
     Indication: COLITIS ULCERATIVE
     Dosage: 160 MG STARTER DOSE ON 27 NOV 2012
     Dates: start: 20121127
  2. ASACOL [Suspect]
     Indication: PRODUCT USED FOR UNKNOWN INDICATION
     Dates: end: 20121206
  3. TOPAMAX [Concomitant]
     Indication: BIPOLAR DISORDER
     Dosage: AT NIGHT
  4. GEODON [Concomitant]
     Indication: BIPOLAR DISORDER
     Dosage: AT NIGHT
  5. LAMICTAL [Concomitant]
     Indication: BIPOLAR DISORDER
     Dosage: AT NIGHT
  6. LOMOTIL [Concomitant]
     Indication: COLITIS ULCERATIVE
     Dosage: OR AS NEEDED
  7. CLONAZEPAM [Concomitant]
     Indication: BIPOLAR DISORDER
     Dosage: AT NIGHT
  8. SEROQUEL [Concomitant]
     Indication: BIPOLAR DISORDER
     Dosage: AT NIGHT
  9. DEPLIN [Concomitant]
     Indication: BIPOLAR DISORDER
     Dosage: AT NIGHT
  10. DEPLIN [Concomitant]
     Indication: COLITIS ULCERATIVE
  11. LEVOXYL [Concomitant]
     Indication: HYPOTHYROIDISM
     Dosage: IN THE MORNING (TOTAL DOSE=0.225 MG)

REACTIONS (3)
  - Anaemia [Not Recovered/Not Resolved]
  - Musculoskeletal pain [Not Recovered/Not Resolved]
  - Painful defaecation [Unknown]
